FAERS Safety Report 14670492 (Version 1)
Quarter: 2018Q1

REPORT INFORMATION
  Report Type: Spontaneous
  Country: US (occurrence: US)
  Receive Date: 20180322
  Receipt Date: 20180322
  Transmission Date: 20180509
  Serious: Yes (Disabling, Other)
  Sender: FDA-Public Use
  Company Number: US-REGENERON PHARMACEUTICALS, INC.-2018-17624

PATIENT

DRUGS (2)
  1. EYLEA [Suspect]
     Active Substance: AFLIBERCEPT
     Indication: MACULAR DEGENERATION
     Dosage: UNK
     Dates: start: 201706
  2. EYLEA [Suspect]
     Active Substance: AFLIBERCEPT
     Dosage: UNK, LAST DOSE, LEFT EYE
     Dates: start: 20180129, end: 20180129

REACTIONS (7)
  - Non-infectious endophthalmitis [Unknown]
  - Retinal detachment [Recovering/Resolving]
  - Eye inflammation [Unknown]
  - Vomiting [Unknown]
  - Blindness [Unknown]
  - Hypopyon [Unknown]
  - Intraocular pressure increased [Unknown]

NARRATIVE: CASE EVENT DATE: 20180130
